FAERS Safety Report 11340515 (Version 1)
Quarter: 2015Q3

REPORT INFORMATION
  Report Type: Spontaneous
  Country: US (occurrence: None)
  Receive Date: 20150803
  Receipt Date: 20150803
  Transmission Date: 20151125
  Serious: Yes (Hospitalization)
  Sender: FDA-Public Use
  Company Number: IPC201507-000475

PATIENT
  Age: 8 Year

DRUGS (2)
  1. FUROSEMIDE (FUROSEMIDE) (FUROSEMIDE) [Suspect]
     Active Substance: FUROSEMIDE
  2. VANCOMYCIN (VANCOMYCIN) (VANCOMYCIN) [Suspect]
     Active Substance: VANCOMYCIN
     Route: 042

REACTIONS (1)
  - Nephropathy toxic [None]
